FAERS Safety Report 4709927-4 (Version None)
Quarter: 2005Q3

REPORT INFORMATION
  Report Type: 
  Country: None (occurrence: None)
  Receive Date: 20050708
  Receipt Date: 20050208
  Transmission Date: 20060218
  Serious: Yes (Hospitalization)
  Sender: FDA-Public Use
  Company Number: NO-ROCHE-394729

PATIENT
  Age: 52 Year
  Sex: Female
  Weight: 75 kg

DRUGS (3)
  1. XENICAL [Suspect]
     Indication: OBESITY
     Route: 048
     Dates: start: 20011115, end: 20020315
  2. CENTYL K [Concomitant]
     Indication: HYPERTENSION
     Dosage: DRUG NAME: CENTYL WITH KCL. STRENGTH: 2,5MG + 573.
     Route: 048
     Dates: start: 20001015
  3. TENORMIN [Concomitant]
     Indication: HYPERTENSION
     Route: 048
     Dates: start: 20001015

REACTIONS (1)
  - PANCREATITIS [None]
